FAERS Safety Report 4278885-1 (Version None)
Quarter: 2004Q1

REPORT INFORMATION
  Report Type: 
  Country: None (occurrence: None)
  Receive Date: 20040122
  Receipt Date: 20040122
  Transmission Date: 20041129
  Serious: No
  Sender: FDA-Public Use
  Company Number: None

PATIENT
  Age: 53 Year
  Sex: Female
  Weight: 88.4514 kg

DRUGS (6)
  1. FENTANYL [Suspect]
     Indication: INJECTION
     Dosage: 2 ML EPIDURAL
     Dates: start: 20030602, end: 20030602
  2. FENTANYL [Suspect]
     Indication: SPINAL DISORDER
     Dosage: 2 ML EPIDURAL
     Dates: start: 20030602, end: 20030602
  3. DEPO-MEDROL [Suspect]
     Dosage: 80 MG EPIDURAL
     Route: 008
     Dates: start: 20030602, end: 20030602
  4. PRILOSEC [Concomitant]
  5. GLUCOPHAGE [Concomitant]
  6. MARCAINE [Concomitant]

REACTIONS (2)
  - RASH [None]
  - RESPIRATORY DISTRESS [None]
